FAERS Safety Report 6414695-4 (Version None)
Quarter: 2009Q4

REPORT INFORMATION
  Report Type: 
  Country: None (occurrence: None)
  Receive Date: 20091021
  Receipt Date: 20090929
  Transmission Date: 20100525
  Serious: Yes (Other)
  Sender: FDA-Public Use
  Company Number: CIO09017241

PATIENT
  Age: 37 Year
  Sex: Female

DRUGS (1)
  1. METAMUCIL, VERSION/TEXTURE/FLAVOR UNKNOWN (PSYLLIUM HYDROPHILIC MUCILL [Suspect]
     Dosage: 1 TSP, 1 /DAY FOR 1 DAY, ORAL
     Route: 048
     Dates: start: 20090921, end: 20090921

REACTIONS (4)
  - CHEST DISCOMFORT [None]
  - DRUG HYPERSENSITIVITY [None]
  - DYSPNOEA [None]
  - PHARYNGEAL OEDEMA [None]
